FAERS Safety Report 24065190 (Version 1)
Quarter: 2024Q3

REPORT INFORMATION
  Report Type: Spontaneous
  Country: FR (occurrence: FR)
  Receive Date: 20240709
  Receipt Date: 20240709
  Transmission Date: 20241017
  Serious: Yes (Hospitalization, Other)
  Sender: CIPHER
  Company Number: FR-CIPHER-2024-FR-000004

PATIENT
  Age: 5 Year
  Sex: Male

DRUGS (2)
  1. TRAMADOL HYDROCHLORIDE [Suspect]
     Active Substance: TRAMADOL HYDROCHLORIDE
     Indication: Pain
     Route: 048
  2. CLONAZEPAM [Concomitant]
     Active Substance: CLONAZEPAM
     Indication: Seizure

REACTIONS (9)
  - Accidental overdose [Recovered/Resolved]
  - Product use issue [Recovered/Resolved]
  - Clonic convulsion [Recovered/Resolved]
  - Altered state of consciousness [Recovered/Resolved]
  - Pallor [Recovered/Resolved]
  - Hypotonia [Recovered/Resolved]
  - Oxygen saturation decreased [Recovered/Resolved]
  - Miosis [Recovered/Resolved]
  - Respiratory acidosis [Recovered/Resolved]
